FAERS Safety Report 22103285 (Version 20)
Quarter: 2025Q4

REPORT INFORMATION
  Report Type: Report from Study
  Country: IN (occurrence: IN)
  Receive Date: 20230316
  Receipt Date: 20251217
  Transmission Date: 20260119
  Serious: Yes (Other)
  Sender: PFIZER
  Company Number: IN-PFIZER INC-PV202300047943

PATIENT
  Age: 64 Year
  Sex: Male
  Weight: 82 kg

DRUGS (24)
  1. LORLATINIB [Suspect]
     Active Substance: LORLATINIB
     Indication: Lung cancer metastatic
     Dosage: 100 MG, 1X/DAY
     Route: 048
     Dates: start: 20230218
  2. LORLATINIB [Suspect]
     Active Substance: LORLATINIB
     Dosage: 100 MG, 1X/DAY
     Route: 048
     Dates: start: 20230221
  3. LORLATINIB [Suspect]
     Active Substance: LORLATINIB
     Dosage: 100 MG, 1X/DAY
     Dates: start: 20230225
  4. LORLATINIB [Suspect]
     Active Substance: LORLATINIB
     Dosage: 100 MG (FOUR 25 MG TABLETS), 1X/DAY
     Route: 048
  5. LORLATINIB [Suspect]
     Active Substance: LORLATINIB
     Dosage: 75 MG (3 TABLETS OF 25MG)
     Route: 048
  6. LORLATINIB [Suspect]
     Active Substance: LORLATINIB
     Dosage: 100 MG (25 MG X 4), 1X/DAY
  7. LORLATINIB [Suspect]
     Active Substance: LORLATINIB
     Dosage: 75 MG, 1X/DAY
     Route: 048
  8. LORLATINIB [Suspect]
     Active Substance: LORLATINIB
     Dosage: 100 MG, 1X/DAY
     Route: 048
  9. LORLATINIB [Suspect]
     Active Substance: LORLATINIB
     Dosage: 100 MG (25 MG X 4), 1X/DAY
  10. LORLATINIB [Suspect]
     Active Substance: LORLATINIB
     Dosage: 100 MG, 1X/DAY
     Route: 048
  11. ATORVASTATIN [Concomitant]
     Active Substance: ATORVASTATIN
     Indication: Blood cholesterol abnormal
     Dosage: 20 MG
     Dates: start: 20230220
  12. LEVERA [DACLATASVIR] [Concomitant]
     Dosage: 500 MG, 2X/DAY
     Dates: start: 20230220
  13. LEVERA [DACLATASVIR] [Concomitant]
     Dosage: 500 MG, 1X/DAY
  14. LEVERA [DACLATASVIR] [Concomitant]
     Dosage: 500 MG, 2X/DAY
  15. CALCIUM CARBONATE\CHOLECALCIFEROL [Concomitant]
     Active Substance: CALCIUM CARBONATE\CHOLECALCIFEROL
     Dosage: UNK UNK, 1X/DAY
     Dates: start: 20230215
  16. CALCIUM CARBONATE\CHOLECALCIFEROL [Concomitant]
     Active Substance: CALCIUM CARBONATE\CHOLECALCIFEROL
     Dosage: 500 MG
     Dates: start: 20230220
  17. CALCIUM CARBONATE\CHOLECALCIFEROL [Concomitant]
     Active Substance: CALCIUM CARBONATE\CHOLECALCIFEROL
     Dosage: 500 MG, 2X/DAY
  18. DEXAMETHASONE [Concomitant]
     Active Substance: DEXAMETHASONE
     Dosage: 2 MG
     Dates: start: 20230220
  19. STORVAS-EZ [Concomitant]
     Dosage: 10 MG
  20. STORVAS-EZ [Concomitant]
     Dosage: 10 MG, 1X/DAY
  21. CALCIROL [COLECALCIFEROL] [Concomitant]
     Dosage: SACHET ONCE IN 15 DAYS WITH MILK
  22. MATILDA FORTE [Concomitant]
     Dosage: 1X/DAY (ONCE A DAY (M/W/R))
  23. ZOLEDRONIC ACID [Concomitant]
     Active Substance: ZOLEDRONIC ACID
     Dosage: 4 MG, EVERY 3 MONTHS
  24. SODIUM CHLORIDE [Concomitant]
     Active Substance: SODIUM CHLORIDE
     Dosage: 100 ML

REACTIONS (18)
  - Electrocardiogram QT prolonged [Not Recovered/Not Resolved]
  - Brain oedema [Recovered/Resolved]
  - White blood cell count decreased [Recovered/Resolved]
  - Thalassaemia beta [Unknown]
  - Haemoglobin decreased [Not Recovered/Not Resolved]
  - Platelet count decreased [Not Recovered/Not Resolved]
  - Low density lipoprotein increased [Not Recovered/Not Resolved]
  - Peripheral swelling [Recovering/Resolving]
  - Swelling face [Recovering/Resolving]
  - Fluid retention [Recovering/Resolving]
  - Oedema peripheral [Unknown]
  - Generalised oedema [Unknown]
  - Glycosylated haemoglobin increased [Not Recovered/Not Resolved]
  - Chest X-ray abnormal [Unknown]
  - Full blood count abnormal [Unknown]
  - Mean cell volume decreased [Not Recovered/Not Resolved]
  - Lymphadenopathy mediastinal [Unknown]
  - Hepatic steatosis [Not Recovered/Not Resolved]

NARRATIVE: CASE EVENT DATE: 20230101
